FAERS Safety Report 6520360-5 (Version None)
Quarter: 2009Q4

REPORT INFORMATION
  Report Type: 
  Country: None (occurrence: None)
  Receive Date: 20091229
  Receipt Date: 20091228
  Transmission Date: 20100525
  Serious: Yes (Other)
  Sender: FDA-Public Use
  Company Number: BR-B.I. PHARMACEUTICALS,INC./RIDGEFIELD-2009-BR-01306BR

PATIENT
  Sex: Female

DRUGS (2)
  1. ATENSINA [Suspect]
     Dosage: NR
  2. CAPTOPRIL [Concomitant]
     Dosage: NR

REACTIONS (1)
  - BLOOD PRESSURE INCREASED [None]
